FAERS Safety Report 15201042 (Version 1)
Quarter: 2018Q3

REPORT INFORMATION
  Report Type: Report from Study
  Country: US (occurrence: US)
  Receive Date: 20180726
  Receipt Date: 20180726
  Transmission Date: 20181010
  Serious: Yes (Other)
  Sender: FDA-Public Use
  Company Number: US-SAKK-2018SA147890AA

PATIENT
  Sex: Female

DRUGS (1)
  1. INSULIN GLARGINE [Suspect]
     Active Substance: INSULIN GLARGINE
     Indication: PRODUCT USED FOR UNKNOWN INDICATION
     Dosage: UNK UNK, UNK, ROUTE INJECTION

REACTIONS (6)
  - Breast cancer [Unknown]
  - Dehydration [Unknown]
  - Blood glucose decreased [Unknown]
  - Pneumonia [Unknown]
  - Colon cancer [Unknown]
  - Loss of consciousness [Unknown]
